FAERS Safety Report 10088566 (Version 1)
Quarter: 2014Q2

REPORT INFORMATION
  Report Type: Spontaneous
  Country: US (occurrence: US)
  Receive Date: 20140421
  Receipt Date: 20140421
  Transmission Date: 20141212
  Serious: No
  Sender: FDA-Public Use
  Company Number: US-BIOGENIDEC-2014BI032238

PATIENT
  Age: 52 Year
  Sex: Female
  Weight: 54 kg

DRUGS (9)
  1. TECFIDERA [Suspect]
     Indication: RELAPSING-REMITTING MULTIPLE SCLEROSIS
     Route: 048
     Dates: start: 20140320, end: 20140320
  2. PROZAC [Concomitant]
     Indication: ANXIETY
  3. DIAZEPAM [Concomitant]
     Indication: ANXIETY
  4. COQ10 [Concomitant]
     Indication: PRODUCT USED FOR UNKNOWN INDICATION
  5. CALCIUM [Concomitant]
     Indication: PRODUCT USED FOR UNKNOWN INDICATION
  6. MAG [Concomitant]
     Indication: PRODUCT USED FOR UNKNOWN INDICATION
  7. SILVER HYDROPHIL [Concomitant]
     Indication: PRODUCT USED FOR UNKNOWN INDICATION
  8. HPDR (NOS) [Concomitant]
  9. SPHINGOLIN [Concomitant]

REACTIONS (2)
  - Dizziness [Recovered/Resolved]
  - Nausea [Recovered/Resolved]
